FAERS Safety Report 25839945 (Version 2)
Quarter: 2025Q4

REPORT INFORMATION
  Report Type: Spontaneous
  Country: US (occurrence: US)
  Receive Date: 20250924
  Receipt Date: 20251119
  Transmission Date: 20260119
  Serious: Yes (Hospitalization)
  Sender: ALMUS
  Company Number: US-ALMIRALL-US-2025-3352

PATIENT
  Age: 69 Year
  Sex: Female

DRUGS (4)
  1. KLISYRI [Suspect]
     Active Substance: TIRBANIBULIN
     Indication: Precancerous condition
     Dates: start: 20250902
  2. KLISYRI [Suspect]
     Active Substance: TIRBANIBULIN
     Indication: Actinic keratosis
  3. BISOPROLOL [Concomitant]
     Active Substance: BISOPROLOL
  4. ATORVASTATIN [Concomitant]
     Active Substance: ATORVASTATIN

REACTIONS (1)
  - Urticaria [Recovering/Resolving]

NARRATIVE: CASE EVENT DATE: 20250909
